FAERS Safety Report 4597915-0 (Version None)
Quarter: 2005Q1

REPORT INFORMATION
  Report Type: 
  Country: None (occurrence: None)
  Receive Date: 20050301
  Receipt Date: 20050228
  Transmission Date: 20050727
  Serious: Yes (Other)
  Sender: FDA-Public Use
  Company Number: S05-USA-00079-01

PATIENT
  Age: 8 Year
  Sex: Female

DRUGS (4)
  1. LEXAPRO [Suspect]
     Indication: DEPRESSION
     Dosage: 5 MG QD PO
     Route: 048
     Dates: start: 20041119, end: 20041214
  2. RISPERDAL [Concomitant]
  3. BUSPAR [Concomitant]
  4. BENADRYL [Concomitant]

REACTIONS (1)
  - SUICIDAL IDEATION [None]
